FAERS Safety Report 6689147-7 (Version None)
Quarter: 2010Q2

REPORT INFORMATION
  Report Type: 
  Country: None (occurrence: None)
  Receive Date: 20100420
  Receipt Date: 20100326
  Transmission Date: 20101027
  Serious: Yes (Other)
  Sender: FDA-Public Use
  Company Number: BR-ABBOTT-09P-020-0604740-00

PATIENT
  Sex: Female
  Weight: 62 kg

DRUGS (2)
  1. HUMIRA [Suspect]
     Indication: RHEUMATOID ARTHRITIS
     Route: 058
     Dates: start: 20081101, end: 20091001
  2. METHOTREXATE [Concomitant]
     Indication: RHEUMATOID ARTHRITIS
     Route: 048
     Dates: start: 20040101

REACTIONS (12)
  - COMPUTERISED TOMOGRAM ABNORMAL [None]
  - COUGH [None]
  - DEAFNESS [None]
  - EAR INFECTION [None]
  - INCREASED UPPER AIRWAY SECRETION [None]
  - LABYRINTHITIS [None]
  - LUNG INFECTION [None]
  - NASOPHARYNGITIS [None]
  - ORGANISING PNEUMONIA [None]
  - PNEUMONIA [None]
  - PYREXIA [None]
  - SINUSITIS [None]
